FAERS Safety Report 22177936 (Version 1)
Quarter: 2023Q2

REPORT INFORMATION
  Report Type: Spontaneous
  Country: US (occurrence: US)
  Receive Date: 20230405
  Receipt Date: 20230405
  Transmission Date: 20230722
  Serious: Yes (Death, Other)
  Sender: FDA-Public Use
  Company Number: US-AMGEN-USASP2023055667

PATIENT

DRUGS (1)
  1. BEVACIZUMAB [Suspect]
     Active Substance: BEVACIZUMAB
     Indication: Choroid melanoma
     Dosage: UNK

REACTIONS (7)
  - Death [Fatal]
  - Cystoid macular oedema [Unknown]
  - Macular degeneration [Unknown]
  - Blindness [Unknown]
  - Metastatic ocular melanoma [Unknown]
  - Eye disorder [Unknown]
  - Off label use [Unknown]
